FAERS Safety Report 22339183 (Version 1)
Quarter: 2023Q2

REPORT INFORMATION
  Report Type: Spontaneous
  Country: CA (occurrence: CA)
  Receive Date: 20230518
  Receipt Date: 20230518
  Transmission Date: 20230722
  Serious: Yes (Other)
  Sender: FDA-Public Use
  Company Number: CA-AMGEN-CANSP2016063482

PATIENT
  Sex: Male

DRUGS (5)
  1. PROLIA [Suspect]
     Active Substance: DENOSUMAB
     Indication: Osteogenesis imperfecta
     Dosage: 1 MILLIGRAM/KG, Q3MO
     Route: 058
  2. PROLIA [Suspect]
     Active Substance: DENOSUMAB
     Dosage: 1 MILLIGRAM/KG, Q2MO
     Route: 058
  3. CALCIUM [Concomitant]
     Active Substance: CALCIUM
  4. VITAMIN D [Concomitant]
     Active Substance: VITAMIN D NOS
  5. ZOLEDRONIC ACID [Concomitant]
     Active Substance: ZOLEDRONIC ACID
     Indication: Product used for unknown indication
     Dosage: 0.025 MILLIGRAM/KG
     Route: 042

REACTIONS (6)
  - Nephrocalcinosis [Unknown]
  - Rebound effect [Unknown]
  - Hypercalcaemia [Recovered/Resolved]
  - Blood parathyroid hormone increased [Unknown]
  - Urine calcium/creatinine ratio increased [Unknown]
  - Off label use [Unknown]
